FAERS Safety Report 5232934-2 (Version None)
Quarter: 2007Q1

REPORT INFORMATION
  Report Type: 
  Country: None (occurrence: None)
  Receive Date: 20070207
  Receipt Date: 20070129
  Transmission Date: 20070707
  Serious: Yes (Hospitalization)
  Sender: FDA-Public Use
  Company Number: JP-NOVOPROD-260441

PATIENT
  Age: 44 Year
  Sex: Male

DRUGS (1)
  1. INNOLET 30R CHU [Suspect]
     Indication: DIABETES MELLITUS
     Dates: start: 20040101

REACTIONS (4)
  - BLOOD GLUCOSE FLUCTUATION [None]
  - CONVULSION [None]
  - DEPRESSED LEVEL OF CONSCIOUSNESS [None]
  - MUSCLE TIGHTNESS [None]
